FAERS Safety Report 8740454 (Version 2)
Quarter: 2013Q2

REPORT INFORMATION
  Report Type: Spontaneous
  Country: US (occurrence: US)
  Receive Date: 20120823
  Receipt Date: 20130524
  Transmission Date: 20140414
  Serious: No
  Sender: FDA-Public Use
  Company Number: US-009507513-1208USA006035

PATIENT
  Sex: Female

DRUGS (5)
  1. SINGULAIR [Suspect]
     Dosage: UNK
     Route: 048
     Dates: start: 20120720
  2. OMNARIS [Suspect]
     Indication: HYPERSENSITIVITY
     Dosage: UNK
     Route: 055
     Dates: start: 20120720
  3. NASONEX [Concomitant]
     Dosage: UNK
     Route: 048
     Dates: end: 20120720
  4. NADOLOL [Concomitant]
  5. SYNTHROID [Concomitant]
     Indication: HYPERSENSITIVITY

REACTIONS (1)
  - Vision blurred [Not Recovered/Not Resolved]
